FAERS Safety Report 7017991-5 (Version None)
Quarter: 2010Q3

REPORT INFORMATION
  Report Type: 
  Country: None (occurrence: None)
  Receive Date: 20100927
  Receipt Date: 20100927
  Transmission Date: 20110219
  Serious: No
  Sender: FDA-Public Use
  Company Number: None

PATIENT

DRUGS (1)
  1. SAVELLA [Suspect]

REACTIONS (7)
  - AGITATION [None]
  - ANXIETY [None]
  - CONFUSIONAL STATE [None]
  - DRUG INTERACTION [None]
  - HYPERHIDROSIS [None]
  - MYOCLONUS [None]
  - SERUM SEROTONIN INCREASED [None]
